FAERS Safety Report 8376237-6 (Version None)
Quarter: 2012Q2

REPORT INFORMATION
  Report Type: 
  Country: None (occurrence: None)
  Receive Date: 20120522
  Receipt Date: 20120517
  Transmission Date: 20120825
  Serious: Yes (Other)
  Sender: FDA-Public Use
  Company Number: US-MUTUAL PHARMACEUTICAL COMPANY, INC.-CLCY20110105

PATIENT
  Sex: Male
  Weight: 131.66 kg

DRUGS (4)
  1. METFORMIN HCL [Concomitant]
     Indication: DIABETES MELLITUS
     Route: 048
  2. NOVOLIN N [Concomitant]
     Indication: DIABETES MELLITUS
     Route: 058
  3. COLCRYS [Suspect]
     Indication: GOUT
     Route: 048
     Dates: start: 20110803, end: 20110807
  4. APIDRA [Concomitant]
     Indication: DIABETES MELLITUS
     Route: 058

REACTIONS (6)
  - ABDOMINAL PAIN UPPER [None]
  - DYSPNOEA [None]
  - ANGER [None]
  - DIARRHOEA [None]
  - SUICIDAL IDEATION [None]
  - INSOMNIA [None]
